FAERS Safety Report 9629366 (Version 1)
Quarter: 2013Q4

REPORT INFORMATION
  Report Type: Spontaneous
  Country: US (occurrence: US)
  Receive Date: 20131017
  Receipt Date: 20131017
  Transmission Date: 20140711
  Serious: No
  Sender: FDA-Public Use
  Company Number: US-ASTRAZENECA-2013SE51402

PATIENT
  Age: 60 Year
  Sex: Male
  Weight: 122.5 kg

DRUGS (12)
  1. ATACAND [Suspect]
     Indication: BLOOD PRESSURE
     Route: 048
  2. CRESTOR [Suspect]
     Route: 048
  3. OMEPRAZOLE [Suspect]
     Route: 048
  4. TRAZADONE [Concomitant]
  5. DIAZIDE [Concomitant]
     Dosage: UNK
  6. SYNTHROID [Concomitant]
  7. DOXAZOSIN [Concomitant]
  8. VENTALIN [Concomitant]
     Dosage: UNK
  9. FLOVENT [Concomitant]
     Dosage: UNK
  10. ZOLPIDEM [Concomitant]
     Dosage: UNK
  11. HYDROCODONE [Concomitant]
     Dosage: 5/325 PRN
  12. CIPROFLOXACIN INTRAVENOUS [Concomitant]

REACTIONS (3)
  - Somnolence [Recovered/Resolved]
  - Blood pressure increased [Recovered/Resolved]
  - Drug ineffective [Unknown]
